FAERS Safety Report 14848043 (Version 1)
Quarter: 2018Q2

REPORT INFORMATION
  Report Type: Report from Study
  Country: None (occurrence: US)
  Receive Date: 20180504
  Receipt Date: 20180504
  Transmission Date: 20180711
  Serious: Yes (Hospitalization, Other)
  Sender: FDA-Public Use
  Company Number: US-ABBVIE-18K-163-2342409-00

PATIENT
  Age: 53 Year
  Sex: Female

DRUGS (1)
  1. HUMIRA [Suspect]
     Active Substance: ADALIMUMAB
     Indication: RHEUMATOID ARTHRITIS
     Route: 058
     Dates: start: 201804

REACTIONS (5)
  - Dyspnoea [Unknown]
  - Transient ischaemic attack [Recovering/Resolving]
  - Device issue [Unknown]
  - Laryngeal mass [Recovering/Resolving]
  - Pharyngeal inflammation [Unknown]

NARRATIVE: CASE EVENT DATE: 201804
